FAERS Safety Report 9753228 (Version 2)
Quarter: 2015Q3

REPORT INFORMATION
  Report Type: Spontaneous
  Country: US (occurrence: US)
  Receive Date: 20131213
  Receipt Date: 20150805
  Transmission Date: 20151125
  Serious: No
  Sender: FDA-Public Use
  Company Number: US-GILEAD-2010-0027632

PATIENT
  Age: 75 Year
  Sex: Female
  Weight: 68.04 kg

DRUGS (15)
  1. COREG [Concomitant]
     Active Substance: CARVEDILOL
  2. ZOCOR [Concomitant]
     Active Substance: SIMVASTATIN
  3. LASIX [Concomitant]
     Active Substance: FUROSEMIDE
  4. ESTRADIOL. [Concomitant]
     Active Substance: ESTRADIOL
  5. LORTAB [Concomitant]
     Active Substance: ACETAMINOPHEN\HYDROCODONE BITARTRATE
  6. DEMADEX [Concomitant]
     Active Substance: TORSEMIDE
  7. ALDACTONE [Concomitant]
     Active Substance: SPIRONOLACTONE
  8. CYMBALTA [Concomitant]
     Active Substance: DULOXETINE HYDROCHLORIDE
  9. FOLIC ACID. [Concomitant]
     Active Substance: FOLIC ACID
  10. NEURONTIN [Concomitant]
     Active Substance: GABAPENTIN
  11. PRINIVIL [Concomitant]
     Active Substance: LISINOPRIL
  12. OXYCONTIN [Concomitant]
     Active Substance: OXYCODONE HYDROCHLORIDE
  13. LETAIRIS [Suspect]
     Active Substance: AMBRISENTAN
     Indication: PULMONARY ARTERIAL HYPERTENSION
     Route: 048
     Dates: start: 20090406
  14. SPIRIVA [Concomitant]
     Active Substance: TIOTROPIUM BROMIDE MONOHYDRATE
  15. PLAVIX [Concomitant]
     Active Substance: CLOPIDOGREL BISULFATE

REACTIONS (1)
  - Pruritus [Unknown]
